FAERS Safety Report 10697214 (Version 1)
Quarter: 2015Q1

REPORT INFORMATION
  Report Type: Spontaneous
  Country: US (occurrence: None)
  Receive Date: 20150106
  Receipt Date: 20150106
  Transmission Date: 20150721
  Serious: Yes (Death, Other)
  Sender: FDA-Public Use
  Company Number: US-2014VAL000692

PATIENT
  Age: 49 Year
  Sex: Female

DRUGS (1)
  1. METOPROLOL TARTRATE. [Suspect]
     Active Substance: METOPROLOL TARTRATE
     Indication: PRODUCT USED FOR UNKNOWN INDICATION

REACTIONS (11)
  - Bradypnoea [None]
  - Coma [None]
  - Pancreatitis [None]
  - Gastrointestinal haemorrhage [None]
  - Hypotension [None]
  - Depressed level of consciousness [None]
  - Metabolic acidosis [None]
  - Acute lung injury [None]
  - Coagulopathy [None]
  - Acute respiratory distress syndrome [None]
  - Respiratory depression [None]
